FAERS Safety Report 4801480-X (Version None)
Quarter: 2005Q4

REPORT INFORMATION
  Report Type: 
  Country: None (occurrence: None)
  Receive Date: 20051018
  Receipt Date: 20051007
  Transmission Date: 20060501
  Serious: Yes (Other)
  Sender: FDA-Public Use
  Company Number: SE-JNJFOC-20051001645

PATIENT
  Age: 71 Year
  Sex: Female

DRUGS (6)
  1. REMICADE [Suspect]
     Indication: RHEUMATOID ARTHRITIS
     Route: 042
  2. METHOTREXATE [Concomitant]
     Route: 065
  3. FOLACIN [Concomitant]
     Route: 065
  4. FOLACIN [Concomitant]
     Route: 065
  5. CALCIUM GLUCONATE [Concomitant]
     Route: 065
  6. IMOVANE [Concomitant]
     Route: 065

REACTIONS (1)
  - OPTIC ATROPHY [None]
